FAERS Safety Report 11392606 (Version 1)
Quarter: 2015Q3

REPORT INFORMATION
  Report Type: Spontaneous
  Country: AR (occurrence: AR)
  Receive Date: 20150818
  Receipt Date: 20150818
  Transmission Date: 20151125
  Serious: Yes (Other)
  Sender: FDA-Public Use
  Company Number: AR-AMGEN-ARGSP2015083832

PATIENT
  Age: 20 Year
  Sex: Female

DRUGS (1)
  1. XGEVA [Suspect]
     Active Substance: DENOSUMAB
     Indication: BONE GIANT CELL TUMOUR BENIGN
     Dosage: 360 MG, Q4WK
     Route: 058
     Dates: start: 201305

REACTIONS (1)
  - Osteosarcoma recurrent [Recovered/Resolved]
